FAERS Safety Report 11723809 (Version 2)
Quarter: 2015Q4

REPORT INFORMATION
  Report Type: Spontaneous
  Country: JP (occurrence: JP)
  Receive Date: 20151111
  Receipt Date: 20151202
  Transmission Date: 20160304
  Serious: Yes (Hospitalization)
  Sender: FDA-Public Use
  Company Number: JP-MYLANLABS-2015M1038384

PATIENT

DRUGS (2)
  1. FLUOROURACIL. [Suspect]
     Active Substance: FLUOROURACIL
     Indication: OESOPHAGEAL CARCINOMA
     Dosage: 700 MG/M2 DAY 1-4, DAY 29-32
     Route: 050
  2. CISPLATIN. [Suspect]
     Active Substance: CISPLATIN
     Indication: OESOPHAGEAL CARCINOMA
     Dosage: 70 MG/M2 DAY 1 AND DAY 29
     Route: 050

REACTIONS (2)
  - Gastritis haemorrhagic [Recovered/Resolved]
  - Anaemia [Recovered/Resolved]
